FAERS Safety Report 5491012-8 (Version None)
Quarter: 2007Q4

REPORT INFORMATION
  Report Type: 
  Country: None (occurrence: None)
  Receive Date: 20071019
  Receipt Date: 20071005
  Transmission Date: 20080405
  Serious: Yes (Other)
  Sender: FDA-Public Use
  Company Number: DE-GENENTECH-249056

PATIENT
  Sex: Male
  Weight: 53 kg

DRUGS (1)
  1. RANIBIZUMAB [Suspect]
     Indication: MACULAR DEGENERATION
     Dosage: 0.05 A?L, UNK
     Route: 031
     Dates: start: 20070220

REACTIONS (2)
  - ARRHYTHMIA [None]
  - DISEASE PROGRESSION [None]
